FAERS Safety Report 4502542-7 (Version None)
Quarter: 2004Q4

REPORT INFORMATION
  Report Type: 
  Country: None (occurrence: None)
  Receive Date: 20041112
  Receipt Date: 20041105
  Transmission Date: 20050328
  Serious: Yes (Other)
  Sender: FDA-Public Use
  Company Number: NLWYE065324SEP04

PATIENT
  Age: 62 Year
  Sex: Female

DRUGS (9)
  1. SIROLIMUS (SIROLIMUS, 0) [Suspect]
     Indication: NEOPLASM SKIN
     Dosage: 2 MG 1X PER 1 DAY ORAL
     Route: 048
     Dates: start: 20040720, end: 20040927
  2. SIROLIMUS (SIROLIMUS, 0) [Suspect]
     Indication: PROPHYLAXIS AGAINST TRANSPLANT REJECTION
     Dosage: 2 MG 1X PER 1 DAY ORAL
     Route: 048
     Dates: start: 20040720, end: 20040927
  3. PREDNISONE [Concomitant]
  4. CEFUROXIME AXETIL [Concomitant]
  5. ATENOLOL [Concomitant]
  6. PROMOCARD (ISOSORBIDE MONONITRATE) [Concomitant]
  7. ASCAL (ACETYLSALICYLATE CALCIUM) [Concomitant]
  8. PRAVASTATIN [Concomitant]
  9. AUGMENTIN (AMOXICILLIN SODIUM/CLAVULANATE POTASSIUM) [Concomitant]

REACTIONS (1)
  - DIABETES MELLITUS NON-INSULIN-DEPENDENT [None]
